FAERS Safety Report 17280128 (Version 1)
Quarter: 2020Q1

REPORT INFORMATION
  Report Type: Spontaneous
  Country: JP (occurrence: JP)
  Receive Date: 20200117
  Receipt Date: 20200117
  Transmission Date: 20200409
  Serious: Yes (Hospitalization)
  Sender: FDA-Public Use
  Company Number: NVSJ2020JP000747

PATIENT
  Age: 62 Year
  Sex: Male

DRUGS (1)
  1. VOTRIENT [Suspect]
     Active Substance: PAZOPANIB HYDROCHLORIDE
     Indication: RENAL CELL CARCINOMA
     Route: 048

REACTIONS (6)
  - Alanine aminotransferase increased [Unknown]
  - Rash [Unknown]
  - Liver disorder [Unknown]
  - C-reactive protein increased [Unknown]
  - Platelet count decreased [Unknown]
  - Prothrombin time shortened [Unknown]
